FAERS Safety Report 12367793 (Version 1)
Quarter: 2016Q2

REPORT INFORMATION
  Report Type: Other
  Country: DK (occurrence: SA)
  Receive Date: 20160513
  Receipt Date: 20160513
  Transmission Date: 20160815
  Serious: Yes (Death, Hospitalization, Other)
  Sender: FDA-Public Use
  Company Number: SA-FRI-1000084672

PATIENT
  Age: 52 Year
  Sex: Male

DRUGS (3)
  1. THIAMINE. [Concomitant]
     Active Substance: THIAMINE
     Indication: MARCHIAFAVA-BIGNAMI DISEASE
     Route: 042
  2. VITAMIN B COMPLEX [Concomitant]
     Active Substance: CYANOCOBALAMIN\DEXPANTHENOL\NIACINAMIDE\PYRIDOXINE HYDROCHLORIDE\RIBOFLAVIN 5^-PHOSPHATE SODIUM\THIAMINE HYDROCHLORIDE\VITAMIN B COMPLEX
     Indication: MARCHIAFAVA-BIGNAMI DISEASE
     Route: 065
  3. CITALOPRAM [Suspect]
     Active Substance: CITALOPRAM HYDROBROMIDE
     Indication: DEPRESSION
     Dosage: UNKNOWN
     Route: 065

REACTIONS (4)
  - Acute kidney injury [Fatal]
  - Serotonin syndrome [Fatal]
  - Hyperkalaemia [Fatal]
  - Rhabdomyolysis [Fatal]
